FAERS Safety Report 5808237-1 (Version None)
Quarter: 2008Q3

REPORT INFORMATION
  Report Type: 
  Country: None (occurrence: None)
  Receive Date: 20080709
  Receipt Date: 20080701
  Transmission Date: 20090109
  Serious: Yes (Hospitalization)
  Sender: FDA-Public Use
  Company Number: 14398

PATIENT
  Age: 44 Year
  Sex: Female

DRUGS (6)
  1. MORPHINE SULFATE [Suspect]
     Indication: CONNECTIVE TISSUE DISORDER
     Dosage: 60MG BID ORAL
     Route: 048
     Dates: start: 20080605
  2. PHERGAN [Concomitant]
  3. XANAX [Concomitant]
  4. LUNESTA [Concomitant]
  5. CELEXA [Concomitant]
  6. UNSPECIFIED BLOOD THINNER [Concomitant]

REACTIONS (4)
  - CONTUSION [None]
  - INTERNATIONAL NORMALISED RATIO ABNORMAL [None]
  - PHARMACEUTICAL PRODUCT COMPLAINT [None]
  - PROTHROMBIN TIME ABNORMAL [None]
